FAERS Safety Report 7104636-9 (Version None)
Quarter: 2010Q4

REPORT INFORMATION
  Report Type: 
  Country: None (occurrence: None)
  Receive Date: 20101109
  Receipt Date: 20101025
  Transmission Date: 20110411
  Serious: Yes (Hospitalization)
  Sender: FDA-Public Use
  Company Number: 1000017098

PATIENT
  Sex: Female

DRUGS (8)
  1. ESCITALOPRAM [Suspect]
     Dosage: 5 MG (5 MG, 1 IN 1 D) ,ORAL
     Route: 048
     Dates: start: 20070101
  2. TEGRETOL [Suspect]
     Dosage: 200 MG (200 MG, 1IN 1 D), ORAL
     Route: 048
     Dates: start: 20070101
  3. TRANXENE [Suspect]
     Dosage: 15  MG (15MG, 1IN 1 D), ORAL
     Route: 048
     Dates: start: 20070101
  4. TERCIAN (CYAMEMAZINE) (SOLUTION) [Suspect]
     Dosage: 90  MG (90 MG, 1IN 1 D), ORAL
     Route: 048
     Dates: start: 20070101
  5. HALDOL [Suspect]
     Dosage: 5 MG (5 MG, 1IN 1 D), ORAL
     Route: 048
     Dates: start: 20080222
  6. ABILIFY (ARIP IPRAZOLE ) (ARIPIPRAZOLE) [Concomitant]
  7. FOLIC ACID (FOLIC ACID) (FOLIC ACID) [Concomitant]
  8. ALDOMET [Concomitant]

REACTIONS (7)
  - BLOOD ALBUMIN INCREASED [None]
  - CAESAREAN SECTION [None]
  - DRUG EXPOSURE DURING PREGNANCY [None]
  - GESTATIONAL HYPERTENSION [None]
  - PRE-ECLAMPSIA [None]
  - PREGNANCY [None]
  - PREMATURE LABOUR [None]
